FAERS Safety Report 6809315-0 (Version None)
Quarter: 2010Q2

REPORT INFORMATION
  Report Type: 
  Country: None (occurrence: None)
  Receive Date: 20100630
  Receipt Date: 20100618
  Transmission Date: 20101027
  Serious: Yes (Other)
  Sender: FDA-Public Use
  Company Number: IE-TYCO HEALTHCARE/MALLINCKRODT-T201001502

PATIENT
  Age: 16 Year

DRUGS (2)
  1. SODIUM IODIDE I 131 [Suspect]
     Indication: NEOPLASM MALIGNANT
     Dosage: UNK
  2. SODIUM IODIDE I 131 [Suspect]
     Indication: THYROID CANCER
     Dosage: UNK

REACTIONS (2)
  - METASTASES TO LUNG [None]
  - TREATMENT FAILURE [None]
